FAERS Safety Report 20719411 (Version 1)
Quarter: 2022Q2

REPORT INFORMATION
  Report Type: Spontaneous
  Country: US (occurrence: US)
  Receive Date: 20220418
  Receipt Date: 20220418
  Transmission Date: 20220721
  Serious: Yes (Hospitalization, Other)
  Sender: FDA-Public Use
  Company Number: US-BRISTOL-MYERS SQUIBB COMPANY-2022-019908

PATIENT
  Age: 78 Year
  Sex: Male
  Weight: 95.7 kg

DRUGS (1)
  1. POMALYST [Suspect]
     Active Substance: POMALIDOMIDE
     Indication: Plasma cell myeloma
     Dosage: DAILY 21D ON, 28 D CYCLE
     Route: 048
     Dates: start: 20210312

REACTIONS (1)
  - Femur fracture [Unknown]
